FAERS Safety Report 6922726-8 (Version None)
Quarter: 2010Q3

REPORT INFORMATION
  Report Type: 
  Country: None (occurrence: None)
  Receive Date: 20100813
  Receipt Date: 20100812
  Transmission Date: 20110219
  Serious: Yes (Death, Hospitalization)
  Sender: FDA-Public Use
  Company Number: PHHO2010NL10123

PATIENT
  Sex: Male
  Weight: 70 kg

DRUGS (16)
  1. MYCOPHENOLIC ACID [Suspect]
     Indication: STEM CELL TRANSPLANT
     Dosage: 750 MG, TID
     Route: 042
     Dates: start: 20100611
  2. SANDIMMUNE [Suspect]
     Indication: STEM CELL TRANSPLANT
     Dosage: 450MG/DAY
     Route: 042
     Dates: start: 20100609, end: 20100616
  3. SANDIMMUNE [Suspect]
     Dosage: 150MG/DAY
     Route: 042
     Dates: start: 20100617, end: 20100618
  4. SANDIMMUNE [Suspect]
     Dosage: 200MG/DAY
     Route: 042
     Dates: start: 20100619, end: 20100621
  5. SANDIMMUNE [Suspect]
     Dosage: 250MG/DAY
     Route: 042
     Dates: start: 20100622, end: 20100622
  6. PREDNISOLONE [Suspect]
     Indication: STEM CELL TRANSPLANT
     Dosage: 75 MG, BID
     Route: 042
     Dates: start: 20100611
  7. ETANERCEPT [Concomitant]
  8. ACYCLOVIR [Concomitant]
  9. ALENDRONIC ACID [Concomitant]
  10. AMLODIPINE [Concomitant]
     Indication: HYPERTENSION
  11. ATENOLOL [Concomitant]
     Indication: HYPERTENSION
  12. INSULIN [Concomitant]
  13. CIPROFLOXACIN [Concomitant]
  14. COTRIM [Concomitant]
  15. ESOMEPRAZOLE MAGNESIUM [Concomitant]
  16. IMIPENEM [Concomitant]

REACTIONS (11)
  - ABDOMINAL SEPSIS [None]
  - DIARRHOEA [None]
  - GASTROENTERITIS BACTERIAL [None]
  - GENERAL PHYSICAL HEALTH DETERIORATION [None]
  - GRAFT VERSUS HOST DISEASE [None]
  - HAEMATOCHEZIA [None]
  - HYPOTENSION [None]
  - LUNG INFILTRATION [None]
  - MULTI-ORGAN FAILURE [None]
  - RENAL FAILURE [None]
  - RESPIRATORY FAILURE [None]
